FAERS Safety Report 4559770-4 (Version None)
Quarter: 2005Q1

REPORT INFORMATION
  Report Type: 
  Country: None (occurrence: None)
  Receive Date: 20050113
  Receipt Date: 20040921
  Transmission Date: 20050727
  Serious: Yes (Death)
  Sender: FDA-Public Use
  Company Number: 04P-163-0274452-00

PATIENT
  Age: 47 Year
  Sex: Female

DRUGS (1)
  1. DEPACON [Suspect]
     Indication: STATUS EPILEPTICUS
     Dosage: INTRAVENOUS
     Route: 042
     Dates: start: 20040905, end: 20040906

REACTIONS (1)
  - PANCREATITIS HAEMORRHAGIC [None]
